FAERS Safety Report 6020174-9 (Version None)
Quarter: 2008Q4

REPORT INFORMATION
  Report Type: 
  Country: None (occurrence: None)
  Receive Date: 20081223
  Receipt Date: 20081223
  Transmission Date: 20090506
  Serious: Yes (Other)
  Sender: FDA-Public Use
  Company Number: None

PATIENT
  Age: 55 Year
  Sex: Female

DRUGS (2)
  1. ASTELIN [Suspect]
     Indication: MULTIPLE ALLERGIES
     Dosage: USE 2 SPRAYS IN EACH NOSTRIL EVERY 12 HOURS
     Dates: start: 20081213, end: 20081217
  2. ASTELIN [Suspect]
     Indication: NASAL DISORDER
     Dosage: USE 2 SPRAYS IN EACH NOSTRIL EVERY 12 HOURS
     Dates: start: 20081213, end: 20081217

REACTIONS (3)
  - ALTERED VISUAL DEPTH PERCEPTION [None]
  - HALO VISION [None]
  - IMPAIRED DRIVING ABILITY [None]
